FAERS Safety Report 7044102-2 (Version None)
Quarter: 2010Q4

REPORT INFORMATION
  Report Type: 
  Country: None (occurrence: None)
  Receive Date: 20101013
  Receipt Date: 20101001
  Transmission Date: 20110411
  Serious: Yes (Other)
  Sender: FDA-Public Use
  Company Number: US-PFIZER INC-2010127534

PATIENT
  Sex: Female

DRUGS (12)
  1. NEURONTIN [Suspect]
     Indication: MIGRAINE
     Dosage: 600 MG, 3X/DAILY
     Dates: end: 20100901
  2. NEURONTIN [Interacting]
     Indication: NERVE INJURY
  3. PRISTIQ [Interacting]
     Indication: GENERALISED ANXIETY DISORDER
     Dosage: 50 MG, 1X/DAY
     Dates: start: 20100922
  4. CELEXA [Concomitant]
     Dosage: 40 MG, UNK
  5. VISTARIL [Concomitant]
     Indication: ANXIETY
     Dosage: 25 MG, 3X/DAILY
  6. IMITREX [Concomitant]
     Indication: MIGRAINE
     Dosage: UNK
  7. LEVOTHYROXINE [Concomitant]
     Dosage: UNK
  8. RANITIDINE [Concomitant]
     Dosage: UNK
  9. PROTONIX [Concomitant]
     Dosage: UNK
  10. ADVAIR DISKUS 100/50 [Concomitant]
     Dosage: UNK
  11. PROVENTIL /OLD FORM/ [Concomitant]
     Dosage: UNK
  12. TRANXENE [Concomitant]
     Dosage: 35.5 MG, DAILY

REACTIONS (12)
  - ARTHRALGIA [None]
  - CANDIDIASIS [None]
  - COGNITIVE DISORDER [None]
  - DRUG INTERACTION [None]
  - GENERALISED ANXIETY DISORDER [None]
  - JOINT STIFFNESS [None]
  - MUSCULOSKELETAL STIFFNESS [None]
  - PAIN IN EXTREMITY [None]
  - PANIC DISORDER [None]
  - POST-TRAUMATIC STRESS DISORDER [None]
  - STRUCK BY LIGHTNING [None]
  - TONGUE ERUPTION [None]
